FAERS Safety Report 23466411 (Version 1)
Quarter: 2024Q1

REPORT INFORMATION
  Report Type: Report from Study
  Country: US (occurrence: US)
  Receive Date: 20240201
  Receipt Date: 20240201
  Transmission Date: 20240409
  Serious: Yes (Death)
  Sender: FDA-Public Use
  Company Number: US-BAYER-2023A159356

PATIENT
  Age: 80 Year
  Sex: Male

DRUGS (1)
  1. KERENDIA [Suspect]
     Active Substance: FINERENONE
     Indication: Diabetic nephropathy
     Dosage: UNK
     Dates: start: 20221013

REACTIONS (1)
  - Death [Fatal]

NARRATIVE: CASE EVENT DATE: 20231104
